FAERS Safety Report 8407513-6 (Version None)
Quarter: 2012Q2

REPORT INFORMATION
  Report Type: 
  Country: None (occurrence: None)
  Receive Date: 20120604
  Receipt Date: 20120528
  Transmission Date: 20120825
  Serious: Yes (Hospitalization)
  Sender: FDA-Public Use
  Company Number: CA-UCBSA-052178

PATIENT
  Age: 60 Year
  Sex: Female
  Weight: 77.11 kg

DRUGS (11)
  1. CLARITIN [Concomitant]
     Indication: INJECTION SITE REACTION
     Route: 048
     Dates: start: 20120305
  2. METHOTREXATE [Concomitant]
     Dates: start: 20110101, end: 20120101
  3. OMEPRAZOLE (PRISOLEC) [Concomitant]
     Indication: GASTROOESOPHAGEAL REFLUX DISEASE
     Dosage: DAILY
     Route: 048
  4. METHOTREXATE [Concomitant]
     Dates: start: 20040101
  5. PREDNISONE [Suspect]
     Indication: RHEUMATOID ARTHRITIS
     Dosage: DAILY DOSE : 50 MG
     Dates: start: 20120320
  6. ALEVA [Concomitant]
     Indication: RHEUMATOID ARTHRITIS
     Route: 048
     Dates: start: 20120101, end: 20120320
  7. FUROSEMIDE [Concomitant]
  8. CIMZIA [Suspect]
     Indication: RHEUMATOID ARTHRITIS
     Route: 058
     Dates: start: 20120210
  9. HUMIRA [Concomitant]
     Dates: start: 20040101, end: 20110901
  10. SYNTHROID [Concomitant]
     Indication: HYPOTHYROIDISM
     Dosage: DOSE PER INTAKE: 0.075 MG
     Route: 048
  11. HUMIRA [Concomitant]
     Dates: start: 20111001

REACTIONS (13)
  - INJECTION SITE PRURITUS [None]
  - NAUSEA [None]
  - MALAISE [None]
  - HYPERHIDROSIS [None]
  - INJECTION SITE DISCOLOURATION [None]
  - DIZZINESS [None]
  - BLOOD PRESSURE INCREASED [None]
  - LIVER FUNCTION TEST ABNORMAL [None]
  - JOINT SWELLING [None]
  - VOMITING [None]
  - FATIGUE [None]
  - ARTHRALGIA [None]
  - INJECTION SITE REACTION [None]
